FAERS Safety Report 6372890-7 (Version None)
Quarter: 2009Q3

REPORT INFORMATION
  Report Type: 
  Country: None (occurrence: None)
  Receive Date: 20090924
  Receipt Date: 20081126
  Transmission Date: 20100115
  Serious: No
  Sender: FDA-Public Use
  Company Number: US-ASTRAZENECA-2008UW26531

PATIENT
  Age: 49 Year
  Sex: Male

DRUGS (5)
  1. SEROQUEL [Suspect]
     Route: 048
  2. ABILIFY [Concomitant]
  3. WELLBUTRIN XL [Concomitant]
  4. TEMAZEPAM [Concomitant]
  5. LEXAPRO [Concomitant]

REACTIONS (2)
  - DIZZINESS [None]
  - ERYTHEMA [None]
